FAERS Safety Report 10895013 (Version 3)
Quarter: 2015Q2

REPORT INFORMATION
  Report Type: Spontaneous
  Country: IT (occurrence: IT)
  Receive Date: 20150306
  Receipt Date: 20150602
  Transmission Date: 20150821
  Serious: Yes (Other)
  Sender: FDA-Public Use
  Company Number: IT-ALLERGAN-1503800US

PATIENT
  Sex: Male

DRUGS (1)
  1. EXOCIN 0.3% UNGUENTO OFTALMICO [Suspect]
     Active Substance: OFLOXACIN
     Indication: ULCERATIVE KERATITIS
     Dosage: 1 POSOLOGIC UNIT
     Dates: start: 20150131, end: 20150131

REACTIONS (1)
  - Eyelid oedema [Recovering/Resolving]

NARRATIVE: CASE EVENT DATE: 20150201
